FAERS Safety Report 23597338 (Version 1)
Quarter: 2024Q1

REPORT INFORMATION
  Report Type: Spontaneous
  Country: US (occurrence: None)
  Receive Date: 20240305
  Receipt Date: 20240305
  Transmission Date: 20240410
  Serious: Yes (unspecified)
  Sender: FDA-Public Use
  Company Number: None

PATIENT
  Age: 47 Year
  Sex: Female

DRUGS (3)
  1. BIKTARVY [Suspect]
     Active Substance: BICTEGRAVIR SODIUM\EMTRICITABINE\TENOFOVIR ALAFENAMIDE FUMARATE
     Indication: HIV infection
     Dosage: DAILY ORAL?
     Route: 048
     Dates: start: 20200727
  2. SERTRALINE [Concomitant]
     Active Substance: SERTRALINE HYDROCHLORIDE
     Dates: start: 20211117
  3. CYPROHEPTADINE [Concomitant]
     Active Substance: CYPROHEPTADINE
     Dates: start: 20220328

REACTIONS (1)
  - Lipids increased [None]

NARRATIVE: CASE EVENT DATE: 20240304
